FAERS Safety Report 6716287-6 (Version None)
Quarter: 2010Q2

REPORT INFORMATION
  Report Type: 
  Country: None (occurrence: None)
  Receive Date: 20100506
  Receipt Date: 20100506
  Transmission Date: 20101027
  Serious: No
  Sender: FDA-Public Use
  Company Number: None

PATIENT
  Age: 73 Year
  Sex: Female
  Weight: 86.2742 kg

DRUGS (2)
  1. METOCLOPRAMIDE [Suspect]
     Indication: IMPAIRED GASTRIC EMPTYING
     Dosage: 10 MG QID PO SEVERAL MONTHS
     Route: 048
  2. METOCLOPRAMIDE [Suspect]
     Indication: TYPE 2 DIABETES MELLITUS
     Dosage: 10 MG QID PO SEVERAL MONTHS
     Route: 048

REACTIONS (2)
  - CHEST PAIN [None]
  - TARDIVE DYSKINESIA [None]
